FAERS Safety Report 4968474-5 (Version None)
Quarter: 2006Q2

REPORT INFORMATION
  Report Type: 
  Country: None (occurrence: None)
  Receive Date: 20060410
  Receipt Date: 20050729
  Transmission Date: 20061013
  Serious: Yes (Hospitalization)
  Sender: FDA-Public Use
  Company Number: US-MERCK-0508USA00105

PATIENT
  Age: 66 Year
  Sex: Male
  Weight: 142 kg

DRUGS (5)
  1. VIOXX [Suspect]
     Indication: ARTHRALGIA
     Route: 048
     Dates: start: 20000101, end: 20040930
  2. VIOXX [Suspect]
     Route: 048
     Dates: start: 20000127, end: 20040930
  3. VIOXX [Suspect]
     Route: 048
     Dates: start: 20000101, end: 20040930
  4. VIOXX [Suspect]
     Route: 048
     Dates: start: 20000127, end: 20040930
  5. ASPIRIN [Concomitant]
     Route: 065

REACTIONS (1)
  - ANGINA UNSTABLE [None]
